FAERS Safety Report 6531942-9 (Version None)
Quarter: 2010Q1

REPORT INFORMATION
  Report Type: 
  Country: None (occurrence: None)
  Receive Date: 20100107
  Receipt Date: 20100107
  Transmission Date: 20100710
  Serious: No
  Sender: FDA-Public Use
  Company Number: None

PATIENT
  Sex: Female

DRUGS (1)
  1. VANCOMYCIN [Suspect]
     Dosage: 250MG EVERY 12HRS IV
     Route: 042
     Dates: start: 20091116, end: 20091117

REACTIONS (2)
  - FLUSHING [None]
  - RASH ERYTHEMATOUS [None]
